FAERS Safety Report 10598026 (Version 1)
Quarter: 2014Q4

REPORT INFORMATION
  Report Type: Spontaneous
  Country: US (occurrence: None)
  Receive Date: 20141112
  Receipt Date: 20141112
  Transmission Date: 20150529
  Serious: No
  Sender: FDA-Public Use
  Company Number: US-016853

PATIENT
  Age: 65 Year
  Sex: Female
  Weight: 54.43 kg

DRUGS (1)
  1. PREPOPIK [Suspect]
     Active Substance: ANHYDROUS CITRIC ACID\MAGNESIUM OXIDE\SODIUM PICOSULFATE
     Indication: BOWEL PREPARATION
     Dosage: FIRST PACKET: 21AUG2014 AT 6:00 PM; SECOND PACKET 22 AUG 2014 AT 2:00 AM
     Route: 048
     Dates: start: 20140821, end: 20140822

REACTIONS (5)
  - Tremor [None]
  - Syncope [None]
  - Abdominal pain [None]
  - Retching [None]
  - Nausea [None]

NARRATIVE: CASE EVENT DATE: 20140821
